FAERS Safety Report 6039151-7 (Version None)
Quarter: 2009Q1

REPORT INFORMATION
  Report Type: 
  Country: None (occurrence: None)
  Receive Date: 20090115
  Receipt Date: 20090114
  Transmission Date: 20090719
  Serious: Yes (Hospitalization, Other)
  Sender: FDA-Public Use
  Company Number: US-PFIZER INC-2008158241

PATIENT
  Sex: Female

DRUGS (1)
  1. CHANTIX [Suspect]

REACTIONS (5)
  - ADVERSE DRUG REACTION [None]
  - NIGHTMARE [None]
  - PAIN [None]
  - PSYCHOTIC DISORDER [None]
  - SUICIDE ATTEMPT [None]
